FAERS Safety Report 20097434 (Version 1)
Quarter: 2021Q4

REPORT INFORMATION
  Report Type: Spontaneous
  Country: KR (occurrence: KR)
  Receive Date: 20211122
  Receipt Date: 20211122
  Transmission Date: 20220304
  Serious: Yes (Death)
  Sender: FDA-Public Use
  Company Number: KR-NOVARTISPH-NVSC2021KR266357

PATIENT
  Age: 49 Year
  Sex: Female
  Weight: 41 kg

DRUGS (1)
  1. KYMRIAH [Suspect]
     Active Substance: TISAGENLECLEUCEL
     Indication: Diffuse large B-cell lymphoma
     Dosage: UNK
     Route: 042
     Dates: start: 20210617

REACTIONS (1)
  - Death [Fatal]

NARRATIVE: CASE EVENT DATE: 20210929
